FAERS Safety Report 4571632-5 (Version None)
Quarter: 2005Q1

REPORT INFORMATION
  Report Type: 
  Country: None (occurrence: None)
  Receive Date: 20050207
  Receipt Date: 20050119
  Transmission Date: 20050727
  Serious: Yes (Other)
  Sender: FDA-Public Use
  Company Number: 200510499US

PATIENT
  Age: 34 Year
  Sex: Male
  Weight: 78.6 kg

DRUGS (1)
  1. KETEK [Suspect]
     Indication: SINUSITIS
     Dosage: DOSE: TWO 400MG TABLETS
     Dates: start: 20041222, end: 20041227

REACTIONS (1)
  - TENDON RUPTURE [None]
